FAERS Safety Report 4738540-8 (Version None)
Quarter: 2005Q3

REPORT INFORMATION
  Report Type: 
  Country: None (occurrence: None)
  Receive Date: 20050803
  Receipt Date: 20050719
  Transmission Date: 20060218
  Serious: Yes (Hospitalization)
  Sender: FDA-Public Use
  Company Number: 8011143

PATIENT
  Age: 12 Year
  Sex: Male
  Weight: 34 kg

DRUGS (1)
  1. EQUASYM [Suspect]
     Indication: ATTENTION DEFICIT/HYPERACTIVITY DISORDER
     Dosage: 5 MG 1/D PO
     Route: 048
     Dates: start: 20040712

REACTIONS (1)
  - OSTEOCHONDROSIS [None]
